FAERS Safety Report 12833174 (Version 3)
Quarter: 2017Q4

REPORT INFORMATION
  Report Type: Report from Study
  Country: US (occurrence: US)
  Receive Date: 20161010
  Receipt Date: 20171106
  Transmission Date: 20180320
  Serious: No
  Sender: FDA-Public Use
  Company Number: PHEH2016US026013

PATIENT
  Weight: 77.11 kg

DRUGS (1)
  1. COSENTYX [Suspect]
     Active Substance: SECUKINUMAB
     Indication: PSORIASIS
     Dosage: 150 MG, QW
     Route: 058
     Dates: start: 20160822

REACTIONS (4)
  - Skin exfoliation [Unknown]
  - Erythema [Unknown]
  - Discomfort [Unknown]
  - Psoriasis [Unknown]
